FAERS Safety Report 9832281 (Version 1)
Quarter: 2014Q1

REPORT INFORMATION
  Report Type: Spontaneous
  Country: US (occurrence: US)
  Receive Date: 20140121
  Receipt Date: 20140121
  Transmission Date: 20141002
  Serious: Yes (Other)
  Sender: FDA-Public Use
  Company Number: US-BRISTOL-MYERS SQUIBB COMPANY-20015178

PATIENT
  Sex: Female

DRUGS (9)
  1. COUMADIN [Suspect]
  2. POTASSIUM [Concomitant]
  3. LANOXIN [Concomitant]
  4. VERAPAMIL [Concomitant]
  5. MYLANTA [Concomitant]
  6. TUMS [Concomitant]
  7. PEPCID [Concomitant]
  8. BENADRYL [Concomitant]
  9. CRANBERRY [Concomitant]
     Dosage: PILLS.

REACTIONS (1)
  - Cardiac disorder [Unknown]
